FAERS Safety Report 16954013 (Version 1)
Quarter: 2019Q4

REPORT INFORMATION
  Report Type: Spontaneous
  Country: US (occurrence: US)
  Receive Date: 20191023
  Receipt Date: 20191023
  Transmission Date: 20200122
  Serious: No
  Sender: FDA-Public Use
  Company Number: US-ABBVIE-19K-163-2899484-00

PATIENT
  Sex: Female

DRUGS (1)
  1. ORILISSA [Suspect]
     Active Substance: ELAGOLIX SODIUM
     Indication: ENDOMETRIOSIS
     Route: 048
     Dates: start: 201901, end: 20190820

REACTIONS (5)
  - Depressed mood [Unknown]
  - Bone pain [Unknown]
  - Night sweats [Unknown]
  - Breast cyst [Unknown]
  - Depression [Unknown]

NARRATIVE: CASE EVENT DATE: 2019
